FAERS Safety Report 24234812 (Version 1)
Quarter: 2024Q3

REPORT INFORMATION
  Report Type: Spontaneous
  Country: US (occurrence: US)
  Receive Date: 20240821
  Receipt Date: 20240821
  Transmission Date: 20241017
  Serious: No
  Sender: PFIZER
  Company Number: US-PFIZER INC-PV202400107648

PATIENT
  Age: 11 Year
  Sex: Male
  Weight: 30.7 kg

DRUGS (1)
  1. LORLATINIB [Suspect]
     Active Substance: LORLATINIB
     Dosage: 125 MG, DAILY (TAKE 5 TABLET(S) EVERY DAY FOR 30 DAYS)
     Route: 048

REACTIONS (2)
  - Body surface area increased [Unknown]
  - Off label use [Unknown]
